FAERS Safety Report 4468678-4 (Version None)
Quarter: 2004Q4

REPORT INFORMATION
  Report Type: 
  Country: None (occurrence: None)
  Receive Date: 20041007
  Receipt Date: 20030605
  Transmission Date: 20050328
  Serious: Yes (Hospitalization, Disabling)
  Sender: FDA-Public Use
  Company Number: US-MERCK-0306USA00695

PATIENT
  Sex: Female

DRUGS (4)
  1. PREVACID [Concomitant]
     Route: 065
     Dates: start: 19980101, end: 20030201
  2. VIOXX [Suspect]
     Route: 048
  3. VIOXX [Suspect]
     Route: 048
     Dates: start: 20000214
  4. ULTRAM [Concomitant]
     Route: 065
     Dates: start: 20000531

REACTIONS (18)
  - ABDOMINAL DISTENSION [None]
  - ABDOMINAL PAIN [None]
  - ACUTE SINUSITIS [None]
  - ADVERSE EVENT [None]
  - BARRETT'S OESOPHAGUS [None]
  - BENIGN DUODENAL NEOPLASM [None]
  - BLOOD PRESSURE INCREASED [None]
  - BRUNNER'S GLAND HYPERPLASIA [None]
  - CHEST PAIN [None]
  - COSTOCHONDRITIS [None]
  - DERMATITIS ALLERGIC [None]
  - GASTROINTESTINAL PAIN [None]
  - GASTROOESOPHAGEAL REFLUX DISEASE [None]
  - LIPIDS INCREASED [None]
  - LIVER FUNCTION TEST ABNORMAL [None]
  - PAIN [None]
  - SENSATION OF PRESSURE [None]
  - TENDONITIS [None]
